FAERS Safety Report 17688755 (Version 1)
Quarter: 2020Q2

REPORT INFORMATION
  Report Type: Spontaneous
  Country: US (occurrence: US)
  Receive Date: 20200421
  Receipt Date: 20200421
  Transmission Date: 20200714
  Serious: No
  Sender: FDA-Public Use
  Company Number: US-UNITED THERAPEUTICS-UNT-2020-004890

PATIENT
  Age: 83 Year
  Sex: Male

DRUGS (3)
  1. TYVASO [Suspect]
     Active Substance: TREPROSTINIL
     Dosage: 72 ?G, QID
  2. TYVASO [Suspect]
     Active Substance: TREPROSTINIL
     Indication: PULMONARY ARTERIAL HYPERTENSION
     Dosage: UNK
     Dates: start: 20200305
  3. TYVASO [Suspect]
     Active Substance: TREPROSTINIL
     Dosage: 78 ?G, QID
     Dates: start: 20200319

REACTIONS (6)
  - Decreased appetite [Unknown]
  - Cough [Unknown]
  - Diarrhoea [Unknown]
  - Taste disorder [Unknown]
  - Off label use [Unknown]
  - Ageusia [Unknown]

NARRATIVE: CASE EVENT DATE: 202003
